FAERS Safety Report 5528910-2 (Version None)
Quarter: 2007Q4

REPORT INFORMATION
  Report Type: 
  Country: None (occurrence: None)
  Receive Date: 20071129
  Receipt Date: 20071115
  Transmission Date: 20080405
  Serious: Yes (Other)
  Sender: FDA-Public Use
  Company Number: FR-AVENTIS-200511655FR

PATIENT
  Age: 58 Year
  Sex: Male

DRUGS (22)
  1. ARAVA [Suspect]
     Indication: BK VIRUS INFECTION
     Route: 048
     Dates: start: 20041103, end: 20041106
  2. ARAVA [Suspect]
     Route: 048
     Dates: start: 20041107, end: 20041129
  3. ARAVA [Suspect]
     Route: 048
     Dates: start: 20041130, end: 20041211
  4. ARAVA [Suspect]
     Route: 048
     Dates: start: 20041212, end: 20041230
  5. ARAVA [Suspect]
     Route: 048
     Dates: start: 20041231, end: 20041231
  6. LASIX [Suspect]
     Dates: start: 20041211
  7. NEORAL [Concomitant]
     Route: 048
     Dates: start: 20040816, end: 20041212
  8. NEORAL [Concomitant]
     Route: 048
     Dates: start: 20041213, end: 20041228
  9. NEORAL [Concomitant]
     Route: 048
     Dates: start: 20041229
  10. BACTRIM [Concomitant]
     Route: 048
     Dates: start: 20040816
  11. MOPRAL [Concomitant]
     Route: 048
     Dates: start: 20040811, end: 20041101
  12. CORDARONE [Concomitant]
     Route: 048
     Dates: start: 20040817
  13. PREDNISONE TAB [Concomitant]
     Route: 048
     Dates: start: 20040826
  14. FUNGIZONE [Concomitant]
     Route: 048
     Dates: start: 20041102, end: 20040101
  15. NEORECORMON [Concomitant]
     Dates: start: 20040828, end: 20041111
  16. NEORECORMON [Concomitant]
     Dates: start: 20041112, end: 20041125
  17. NEORECORMON [Concomitant]
     Dates: start: 20041126, end: 20040101
  18. CYMEVAN                            /00784201/ [Concomitant]
     Dates: start: 20040903, end: 20041101
  19. INEXIUM [Concomitant]
     Route: 048
     Dates: start: 20041105
  20. AMLOR [Concomitant]
     Route: 048
     Dates: start: 20041210
  21. EUPRESSYL                          /00631801/ [Concomitant]
     Route: 048
     Dates: start: 20041210
  22. COVERSYL                           /00790701/ [Concomitant]
     Route: 048
     Dates: start: 20041210

REACTIONS (5)
  - ANAEMIA [None]
  - ASTHENIA [None]
  - BLOOD CREATININE INCREASED [None]
  - RENAL FAILURE [None]
  - THROMBOCYTOPENIA [None]
